FAERS Safety Report 22031058 (Version 1)
Quarter: 2023Q1

REPORT INFORMATION
  Report Type: Spontaneous
  Country: FR (occurrence: FR)
  Receive Date: 20230223
  Receipt Date: 20230223
  Transmission Date: 20230417
  Serious: Yes (Other)
  Sender: FDA-Public Use
  Company Number: None

PATIENT
  Age: 77 Year
  Sex: Male
  Weight: 75 kg

DRUGS (1)
  1. OXALIPLATIN [Suspect]
     Active Substance: OXALIPLATIN
     Indication: Adenocarcinoma of colon
     Dosage: UNKNOWN 6 CYCLES
     Route: 040
     Dates: start: 20180220, end: 20180509

REACTIONS (1)
  - Portal hypertension [Recovered/Resolved]

NARRATIVE: CASE EVENT DATE: 20180501
